FAERS Safety Report 9052541 (Version 1)
Quarter: 2013Q1

REPORT INFORMATION
  Report Type: Spontaneous
  Country: BR (occurrence: BR)
  Receive Date: 20130207
  Receipt Date: 20130207
  Transmission Date: 20140127
  Serious: Yes (Hospitalization, Other)
  Sender: FDA-Public Use
  Company Number: PHHY2013BR008124

PATIENT
  Age: 19 None
  Sex: Female
  Weight: 52 kg

DRUGS (3)
  1. EXJADE [Suspect]
     Indication: SERUM FERRITIN ABNORMAL
     Dosage: 4 DF, 4 TABLETS OF 250 MG
     Dates: start: 201212, end: 20130115
  2. PROFENID [Concomitant]
     Dosage: UNK UKN, UNK
     Dates: end: 20130117
  3. TRAMAL [Concomitant]
     Dosage: UNK UKN, UNK

REACTIONS (8)
  - Pain [Recovering/Resolving]
  - Haemoglobin decreased [Recovering/Resolving]
  - Gastrointestinal disorder [Recovering/Resolving]
  - Blood pressure increased [Recovering/Resolving]
  - Arthralgia [Recovering/Resolving]
  - Bone pain [Recovering/Resolving]
  - Pyrexia [Recovering/Resolving]
  - Serum ferritin increased [Recovering/Resolving]
